FAERS Safety Report 21784136 (Version 2)
Quarter: 2023Q2

REPORT INFORMATION
  Report Type: Spontaneous
  Country: CA (occurrence: CA)
  Receive Date: 20221227
  Receipt Date: 20230619
  Transmission Date: 20230721
  Serious: Yes (Other)
  Sender: FDA-Public Use
  Company Number: CA-AstraZeneca-2022A407185

PATIENT
  Age: 49 Year
  Sex: Female

DRUGS (1)
  1. TRASTUZUMAB DERUXTECAN [Suspect]
     Active Substance: TRASTUZUMAB DERUXTECAN
     Indication: Breast cancer female
     Dosage: 330 MG, ONCE EVERY 3 WK
     Route: 042

REACTIONS (3)
  - Full blood count abnormal [Unknown]
  - Neutrophil count decreased [Unknown]
  - Product dose omission issue [Unknown]
